FAERS Safety Report 13036363 (Version 2)
Quarter: 2017Q1

REPORT INFORMATION
  Report Type: Spontaneous
  Country: JP (occurrence: JP)
  Receive Date: 20161216
  Receipt Date: 20170104
  Transmission Date: 20170428
  Serious: Yes (Hospitalization)
  Sender: FDA-Public Use
  Company Number: JP-FERRINGPH-2016FE06518

PATIENT

DRUGS (2)
  1. MINIRINMELT [Suspect]
     Active Substance: DESMOPRESSIN ACETATE
     Indication: ENURESIS
     Dosage: 120 ?G, DAILY
     Route: 048
     Dates: start: 2016, end: 2016
  2. ANTIPSYCHOTICS [Concomitant]
     Active Substance: UNSPECIFIED INGREDIENT

REACTIONS (5)
  - Treatment noncompliance [Recovered/Resolved]
  - Water intoxication [Recovered/Resolved]
  - Hyponatraemia [Recovered/Resolved]
  - Rhabdomyolysis [Recovered/Resolved]
  - Blood creatine phosphokinase increased [Recovering/Resolving]

NARRATIVE: CASE EVENT DATE: 201607
